FAERS Safety Report 21634997 (Version 2)
Quarter: 2023Q1

REPORT INFORMATION
  Report Type: Spontaneous
  Country: ES (occurrence: ES)
  Receive Date: 20221123
  Receipt Date: 20230223
  Transmission Date: 20230418
  Serious: Yes (Hospitalization)
  Sender: FDA-Public Use
  Company Number: None

PATIENT

DRUGS (9)
  1. PROPRANOLOL [Interacting]
     Active Substance: PROPRANOLOL HYDROCHLORIDE
     Indication: Migraine prophylaxis
     Dosage: 10 MG C/12 H
     Route: 048
     Dates: start: 20210907, end: 20220309
  2. PROPRANOLOL [Interacting]
     Active Substance: PROPRANOLOL HYDROCHLORIDE
     Indication: Off label use
  3. AGOMELATINE [Interacting]
     Active Substance: AGOMELATINE
     Indication: Depression
     Dosage: 25 MG C/24 H
     Route: 048
     Dates: start: 20220224, end: 20220311
  4. CYMBALTA [Concomitant]
     Active Substance: DULOXETINE HYDROCHLORIDE
     Indication: Persistent depressive disorder
     Dosage: 60 MG DE
     Route: 048
     Dates: start: 20211116
  5. SIMVASTATIN [Concomitant]
     Active Substance: SIMVASTATIN
     Indication: Hyperlipidaemia
     Dosage: 10 MG CE, 28 TABLETS
     Route: 048
     Dates: start: 20170706
  6. EMLA [Concomitant]
     Active Substance: LIDOCAINE\PRILOCAINE
     Indication: Migraine with aura
     Dosage: 1 APPLICATION C/3 MONTHS
     Route: 061
     Dates: start: 20220204
  7. ZOMIG [Concomitant]
     Active Substance: ZOLMITRIPTAN
     Indication: Headache
     Dosage: 5 MG C/24 H, 6 TABLETS
     Route: 048
     Dates: start: 20080901
  8. PREGABALIN [Concomitant]
     Active Substance: PREGABALIN
     Indication: Depression
     Dosage: 50 MG CE, 56 CAPSULES
     Route: 048
     Dates: start: 20211116
  9. ZOLPIDEM [Concomitant]
     Active Substance: ZOLPIDEM TARTRATE
     Indication: Anxiety
     Dosage: 1 MG C/24 H NOC
     Route: 048
     Dates: start: 20131127

REACTIONS (4)
  - Asthenia [Recovered/Resolved]
  - Product use in unapproved indication [Unknown]
  - Product use issue [Unknown]
  - Off label use [Unknown]

NARRATIVE: CASE EVENT DATE: 20220303
